FAERS Safety Report 23745266 (Version 2)
Quarter: 2024Q2

REPORT INFORMATION
  Report Type: Spontaneous
  Country: BE (occurrence: BE)
  Receive Date: 20240416
  Receipt Date: 20240422
  Transmission Date: 20240716
  Serious: Yes (Life-Threatening, Hospitalization, Other)
  Sender: FDA-Public Use
  Company Number: BE-NOVOPROD-1202977

PATIENT
  Age: 62 Year
  Sex: Male
  Weight: 96 kg

DRUGS (10)
  1. RYBELSUS [Suspect]
     Active Substance: SEMAGLUTIDE
     Indication: Type 2 diabetes mellitus
  2. RYBELSUS [Suspect]
     Active Substance: SEMAGLUTIDE
     Indication: Overweight
     Dosage: 0.5 MG, QD (1 WEEK OF INTAKE)
     Route: 048
     Dates: start: 20240217, end: 20240219
  3. ETORICOXIB [Suspect]
     Active Substance: ETORICOXIB
     Dosage: 60
     Route: 048
     Dates: start: 20231112, end: 20231114
  4. ETORICOXIB [Suspect]
     Active Substance: ETORICOXIB
     Indication: Ligament sprain
     Dosage: UNK
     Dates: start: 20240110, end: 20240217
  5. ALLOPURINOL [Concomitant]
     Active Substance: ALLOPURINOL
     Indication: Gout
     Dosage: 300 MG
     Route: 048
     Dates: start: 20160216
  6. ASPIRIN [Concomitant]
     Active Substance: ASPIRIN
     Indication: Anticoagulant therapy
     Dosage: 80
     Route: 048
     Dates: start: 20160211
  7. METFORMIN [Concomitant]
     Active Substance: METFORMIN HYDROCHLORIDE
     Indication: Diabetes mellitus
     Dosage: DOSAGE : 2X850
     Route: 048
     Dates: start: 20231212
  8. OMEPRAZOLE [Concomitant]
     Active Substance: OMEPRAZOLE
     Indication: Gastrooesophageal reflux disease
     Dosage: 20
     Route: 048
     Dates: start: 20231112
  9. EZETIMIBE\ROSUVASTATIN [Concomitant]
     Active Substance: EZETIMIBE\ROSUVASTATIN
     Indication: Blood cholesterol
     Dosage: DOSAGE : 40-10
     Route: 048
     Dates: start: 20231122
  10. XARELTO [Concomitant]
     Active Substance: RIVAROXABAN
     Indication: Anticoagulant therapy
     Dosage: 2.5
     Route: 048
     Dates: start: 20231122

REACTIONS (4)
  - Cardiac arrest [Recovered/Resolved with Sequelae]
  - Cachexia [Unknown]
  - Blood potassium abnormal [Unknown]
  - Product use issue [Unknown]

NARRATIVE: CASE EVENT DATE: 20190217
